FAERS Safety Report 7292944-0 (Version None)
Quarter: 2011Q1

REPORT INFORMATION
  Report Type: 
  Country: None (occurrence: None)
  Receive Date: 20110215
  Receipt Date: 20110207
  Transmission Date: 20110831
  Serious: Yes (Other)
  Sender: FDA-Public Use
  Company Number: FR-JNJFOC-20110202233

PATIENT
  Age: 32 Year
  Sex: Female

DRUGS (2)
  1. REMICADE [Suspect]
     Indication: COLITIS ULCERATIVE
     Dosage: 7TH INFUSION
     Route: 042
  2. REMICADE [Suspect]
     Dosage: SIX INFUSIONS, DATES NOT PROVIDED
     Route: 042

REACTIONS (4)
  - RESPIRATORY DISORDER [None]
  - INFUSION RELATED REACTION [None]
  - GENERALISED ERYTHEMA [None]
  - BODY TEMPERATURE INCREASED [None]
